FAERS Safety Report 5032438-6 (Version None)
Quarter: 2006Q2

REPORT INFORMATION
  Report Type: 
  Country: None (occurrence: None)
  Receive Date: 20060622
  Receipt Date: 20060217
  Transmission Date: 20061013
  Serious: Yes (Other)
  Sender: FDA-Public Use
  Company Number: DEWYE403817FEB06

PATIENT
  Sex: Female
  Weight: 74 kg

DRUGS (2)
  1. ENBREL [Suspect]
     Indication: RHEUMATOID ARTHRITIS
     Route: 058
     Dates: start: 20050901, end: 20051219
  2. CYCLOSPORINE [Suspect]
     Route: 048
     Dates: start: 20051201, end: 20060101

REACTIONS (5)
  - ANGINA PECTORIS [None]
  - BLOOD PRESSURE INCREASED [None]
  - ECZEMA [None]
  - EYELID OEDEMA [None]
  - NERVOUS SYSTEM DISORDER [None]
